FAERS Safety Report 10301336 (Version 1)
Quarter: 2014Q3

REPORT INFORMATION
  Report Type: Spontaneous
  Country: DE (occurrence: DE)
  Receive Date: 20140714
  Receipt Date: 20140714
  Transmission Date: 20150326
  Serious: Yes (Hospitalization)
  Sender: FDA-Public Use
  Company Number: DE-JNJFOC-20140706668

PATIENT
  Sex: Female

DRUGS (2)
  1. LYRICA [Interacting]
     Active Substance: PREGABALIN
     Indication: TUMOUR PAIN
     Route: 065
  2. TRAMAL [Suspect]
     Active Substance: TRAMADOL
     Indication: TUMOUR PAIN
     Route: 065

REACTIONS (4)
  - Nausea [Unknown]
  - Overdose [Unknown]
  - Drug interaction [Unknown]
  - Dizziness [Unknown]
